FAERS Safety Report 17703138 (Version 3)
Quarter: 2020Q2

REPORT INFORMATION
  Report Type: Spontaneous
  Country: US (occurrence: US)
  Receive Date: 20200424
  Receipt Date: 20200618
  Transmission Date: 20200714
  Serious: No
  Sender: FDA-Public Use
  Company Number: US-ASTRAZENECA-2020SE44706

PATIENT
  Sex: Male

DRUGS (3)
  1. METFORMIN [Concomitant]
     Active Substance: METFORMIN HYDROCHLORIDE
     Indication: DIABETES MELLITUS
  2. TAMSULOSIN [Concomitant]
     Active Substance: TAMSULOSIN
     Indication: BLADDER DISORDER
  3. BYDUREON BCISE [Suspect]
     Active Substance: EXENATIDE
     Dosage: 2.0MG UNKNOWN
     Route: 065
     Dates: start: 20200304

REACTIONS (14)
  - Injection site pain [Unknown]
  - Device leakage [Unknown]
  - Blood glucose decreased [Unknown]
  - Dizziness [Unknown]
  - Incorrect dose administered by device [Unknown]
  - Injection site mass [Unknown]
  - Injection site haemorrhage [Unknown]
  - Headache [Unknown]
  - Product communication issue [Unknown]
  - Device issue [Unknown]
  - Diarrhoea [Unknown]
  - Intentional device misuse [Unknown]
  - Feeling abnormal [Unknown]
  - Wrong technique in device usage process [Unknown]
